FAERS Safety Report 21178386 (Version 2)
Quarter: 2022Q3

REPORT INFORMATION
  Report Type: Report from Study
  Country: KR (occurrence: KR)
  Receive Date: 20220805
  Receipt Date: 20220816
  Transmission Date: 20221027
  Serious: Yes (Hospitalization)
  Sender: FDA-Public Use
  Company Number: KR-SA-SAC20220803001895

PATIENT
  Age: 32 Year
  Sex: Female

DRUGS (2)
  1. ISATUXIMAB [Suspect]
     Active Substance: ISATUXIMAB
     Indication: T-cell lymphoma refractory
     Dosage: 400 MG, QW
     Route: 042
     Dates: start: 20220713, end: 20220713
  2. CEMIPLIMAB [Suspect]
     Active Substance: CEMIPLIMAB
     Indication: T-cell lymphoma refractory
     Dosage: 250 MG, Q2W
     Route: 042
     Dates: start: 20220712, end: 20220712

REACTIONS (1)
  - Pyrexia [Recovered/Resolved]

NARRATIVE: CASE EVENT DATE: 20220728
